FAERS Safety Report 7520326-2 (Version None)
Quarter: 2011Q2

REPORT INFORMATION
  Report Type: 
  Country: None (occurrence: None)
  Receive Date: 20110602
  Receipt Date: 20110527
  Transmission Date: 20111010
  Serious: Yes (Other)
  Sender: FDA-Public Use
  Company Number: FR-ABBOTT-11P-056-0724569-00

PATIENT
  Sex: Female
  Weight: 67 kg

DRUGS (4)
  1. HUMIRA [Suspect]
     Indication: ARTHROPATHY
  2. HYDROCORTISONE [Concomitant]
     Indication: CROHN'S DISEASE
     Route: 048
     Dates: start: 20110101, end: 20110201
  3. AZATHIOPRINE [Concomitant]
     Indication: CROHN'S DISEASE
     Route: 048
     Dates: start: 20070601
  4. HUMIRA [Suspect]
     Indication: CROHN'S DISEASE
     Dosage: 80 MG ON 15-JAN-2011 40 MG ON 29-JAN-2011 40 MG ON 12-FEB-2011
     Dates: start: 20110115, end: 20110212

REACTIONS (4)
  - ARTHRALGIA [None]
  - PAIN IN EXTREMITY [None]
  - MYALGIA [None]
  - BURNING SENSATION [None]
